FAERS Safety Report 20821860 (Version 1)
Quarter: 2022Q2

REPORT INFORMATION
  Report Type: Spontaneous
  Country: DE (occurrence: DE)
  Receive Date: 20220512
  Receipt Date: 20220512
  Transmission Date: 20220720
  Serious: Yes (Hospitalization)
  Sender: FDA-Public Use
  Company Number: DE-DSJP-DSE-2022-115936

PATIENT
  Sex: Female
  Weight: 66 kg

DRUGS (1)
  1. EDOXABAN TOSYLATE [Suspect]
     Active Substance: EDOXABAN TOSYLATE
     Indication: Product used for unknown indication
     Dosage: 60 MG, QD
     Route: 065

REACTIONS (4)
  - Dislocation of vertebra [Unknown]
  - Spinal fracture [Recovered/Resolved with Sequelae]
  - Erythema [Unknown]
  - Weight decreased [Unknown]
